FAERS Safety Report 10077019 (Version 1)
Quarter: 2014Q2

REPORT INFORMATION
  Report Type: Spontaneous
  Country: GB (occurrence: GB)
  Receive Date: 20140414
  Receipt Date: 20140414
  Transmission Date: 20141212
  Serious: Yes (Other)
  Sender: FDA-Public Use
  Company Number: GB-TEVA-474245ISR

PATIENT
  Age: 65 Year
  Sex: Female
  Weight: 55 kg

DRUGS (2)
  1. FLUMAZENIL [Suspect]
     Indication: REVERSAL OF SEDATION
     Dosage: STAT
     Route: 042
     Dates: start: 20140327, end: 20140327
  2. OMEPRAZOLE [Concomitant]

REACTIONS (2)
  - Sinus tachycardia [Recovered/Resolved]
  - Hypertension [Recovered/Resolved]
